FAERS Safety Report 13737647 (Version 1)
Quarter: 2017Q3

REPORT INFORMATION
  Report Type: Report from Study
  Country: US (occurrence: US)
  Receive Date: 20170710
  Receipt Date: 20170710
  Transmission Date: 20171127
  Serious: No
  Sender: FDA-Public Use
  Company Number: US-SAOL THERAPEUTICS-2016SAO00236

PATIENT
  Age: 44 Year
  Sex: Female

DRUGS (8)
  1. BUPICACAINE INTRATHECAL [Suspect]
     Active Substance: BUPIVACAINE
     Dosage: 6.672 ?G, \DAY
     Route: 037
     Dates: start: 20160511
  2. MORPHINE [Suspect]
     Active Substance: MORPHINE
     Dosage: 5.004 MG, \DAY
     Route: 037
     Dates: start: 20160511
  3. BUPICACAINE INTRATHECAL [Suspect]
     Active Substance: BUPIVACAINE
     Dosage: 11.307 MG, \DAY
     Route: 037
     Dates: start: 20160511
  4. CLONIDINE. [Suspect]
     Active Substance: CLONIDINE
     Dosage: 56.54 ?G, \DAY
     Route: 037
     Dates: start: 20160511
  5. MORPHINE [Suspect]
     Active Substance: MORPHINE
     Dosage: 8.480 MG, \DAY
     Dates: start: 20160511
  6. COMPOUNDED BACLOFEN [Suspect]
     Active Substance: BACLOFEN
     Indication: PAIN
     Dosage: 333.6 ?G, \DAY
     Route: 037
     Dates: start: 20160511
  7. CLONIDINE. [Suspect]
     Active Substance: CLONIDINE
     Dosage: 33.36 ?G, \DAY
     Route: 037
     Dates: start: 20160511
  8. COMPOUNDED BACLOFEN [Suspect]
     Active Substance: BACLOFEN
     Indication: LUMBAR RADICULOPATHY
     Dosage: 565.4 ?G, \DAY
     Route: 037
     Dates: start: 20160511

REACTIONS (2)
  - Implant site pain [Recovered/Resolved]
  - Off label use [Unknown]

NARRATIVE: CASE EVENT DATE: 20160623
